FAERS Safety Report 13035508 (Version 1)
Quarter: 2016Q4

REPORT INFORMATION
  Report Type: Spontaneous
  Country: US (occurrence: US)
  Receive Date: 20161215
  Receipt Date: 20161215
  Transmission Date: 20170207
  Serious: Yes (Other)
  Sender: FDA-Public Use
  Company Number: None

PATIENT
  Age: 35 Year
  Sex: Female
  Weight: 52.21 kg

DRUGS (7)
  1. NEURONTIN [Concomitant]
     Active Substance: GABAPENTIN
  2. SUBOXONE [Suspect]
     Active Substance: BUPRENORPHINE HYDROCHLORIDE\NALOXONE HYDROCHLORIDE
     Indication: DRUG DEPENDENCE
     Dosage: SUBOXONE (BUPRENORPHINE/NALOXONE) - QUANITY T FILM - SUBLINGUAL - BID
     Route: 060
     Dates: start: 20161214, end: 201612
  3. VITAMIN D [Concomitant]
     Active Substance: CHOLECALCIFEROL
  4. SAPHRIS [Concomitant]
     Active Substance: ASENAPINE MALEATE
  5. CLONIDINE. [Concomitant]
     Active Substance: CLONIDINE
  6. LUVOX CR [Concomitant]
     Active Substance: FLUVOXAMINE MALEATE
  7. VITAMIN B COMPLEX [Concomitant]
     Active Substance: CYANOCOBALAMIN\DEXPANTHENOL\NIACINAMIDE\PYRIDOXINE HYDROCHLORIDE\RIBOFLAVIN 5^-PHOSPHATE SODIUM\THIAMINE HYDROCHLORIDE\VITAMIN B COMPLEX

REACTIONS (2)
  - Pruritus [None]
  - Urticaria [None]

NARRATIVE: CASE EVENT DATE: 201612
